FAERS Safety Report 10007984 (Version 3)
Quarter: 2015Q1

REPORT INFORMATION
  Report Type: Spontaneous
  Country: US (occurrence: US)
  Receive Date: 20140313
  Receipt Date: 20150127
  Transmission Date: 20150720
  Serious: Yes (Other)
  Sender: FDA-Public Use
  Company Number: US-BRISTOL-MYERS SQUIBB COMPANY-20386355

PATIENT
  Age: 65 Year
  Sex: Female
  Weight: 144 kg

DRUGS (13)
  1. VITAMIN E                          /00110501/ [Concomitant]
  2. SYNTHROID [Concomitant]
     Active Substance: LEVOTHYROXINE SODIUM
  3. VITAMIN D                          /00107901/ [Concomitant]
     Active Substance: ERGOCALCIFEROL
  4. OMEGA-3                            /01866101/ [Concomitant]
     Active Substance: OMEGA-3 FATTY ACIDS
  5. AMARYL [Concomitant]
     Active Substance: GLIMEPIRIDE
  6. BYETTA [Suspect]
     Active Substance: EXENATIDE
     Indication: TYPE 2 DIABETES MELLITUS
     Dosage: 5 ?G, QD
     Route: 065
     Dates: start: 200808, end: 200901
  7. VITAMIN C [Concomitant]
     Active Substance: ASCORBIC ACID
  8. GINKGO                             /01003101/ [Concomitant]
  9. FISH OIL [Concomitant]
     Active Substance: FISH OIL
  10. HYDROCODONE [Concomitant]
     Active Substance: HYDROCODONE
  11. GLUCOSAMINE [Concomitant]
     Active Substance: GLUCOSAMINE
  12. GLUCOPHAGE [Concomitant]
     Active Substance: METFORMIN HYDROCHLORIDE
  13. COENZYME Q-GEL [Concomitant]

REACTIONS (1)
  - Thyroid cancer [Unknown]

NARRATIVE: CASE EVENT DATE: 201106
